FAERS Safety Report 5868496-6 (Version None)
Quarter: 2008Q3

REPORT INFORMATION
  Report Type: 
  Country: None (occurrence: None)
  Receive Date: 20080903
  Receipt Date: 20080822
  Transmission Date: 20090109
  Serious: Yes (Hospitalization)
  Sender: FDA-Public Use
  Company Number: FR-WYE-H05779708

PATIENT
  Sex: Male

DRUGS (8)
  1. CORDARONE [Suspect]
     Indication: ATRIAL FIBRILLATION
     Route: 048
  2. URBANYL [Suspect]
     Indication: ANXIETY
     Route: 048
     Dates: start: 20080530, end: 20080623
  3. MOPRAL [Suspect]
     Indication: GASTRIC ULCER
     Route: 048
  4. ELISOR [Suspect]
     Indication: PROPHYLAXIS
     Route: 048
  5. KEPPRA [Suspect]
     Indication: EPILEPSY
     Route: 048
     Dates: start: 20080530
  6. GLUCOPHAGE [Suspect]
     Indication: TYPE 2 DIABETES MELLITUS
     Route: 048
     Dates: end: 20080626
  7. ASPIRIN [Suspect]
     Indication: PROPHYLAXIS
     Route: 048
  8. NORFLOXACIN [Suspect]
     Indication: URINARY TRACT INFECTION
     Route: 048
     Dates: start: 20080528, end: 20080625

REACTIONS (17)
  - ABNORMAL BEHAVIOUR [None]
  - ANXIETY [None]
  - CACHEXIA [None]
  - CONDITION AGGRAVATED [None]
  - CONSTIPATION [None]
  - CYSTITIS [None]
  - DEHYDRATION [None]
  - DISORIENTATION [None]
  - FALL [None]
  - GENERAL PHYSICAL HEALTH DETERIORATION [None]
  - KLEBSIELLA INFECTION [None]
  - MUSCLE CONTRACTIONS INVOLUNTARY [None]
  - PETIT MAL EPILEPSY [None]
  - SLEEP DISORDER [None]
  - TREMOR [None]
  - URINARY TRACT INFECTION [None]
  - VERTIGO [None]
